FAERS Safety Report 6017995-5 (Version None)
Quarter: 2008Q4

REPORT INFORMATION
  Report Type: 
  Country: None (occurrence: None)
  Receive Date: 20081223
  Receipt Date: 20081215
  Transmission Date: 20090506
  Serious: Yes (Hospitalization)
  Sender: FDA-Public Use
  Company Number: B0522354A

PATIENT
  Age: 15 Year
  Sex: Male

DRUGS (1)
  1. AUGMENTIN '125' [Suspect]
     Indication: PHARYNGITIS
     Dosage: 2G PER DAY
     Route: 048
     Dates: start: 20071202, end: 20071207

REACTIONS (3)
  - CONDITION AGGRAVATED [None]
  - PRURITUS [None]
  - URTICARIA [None]
